FAERS Safety Report 13194711 (Version 2)
Quarter: 2017Q1

REPORT INFORMATION
  Report Type: Report from Study
  Country: US (occurrence: US)
  Receive Date: 20170207
  Receipt Date: 20170213
  Transmission Date: 20170428
  Serious: Yes (Other)
  Sender: FDA-Public Use
  Company Number: US-ALEXION-A201701036

PATIENT
  Sex: Female

DRUGS (3)
  1. SOLIRIS [Suspect]
     Active Substance: ECULIZUMAB
     Indication: HAEMOLYTIC URAEMIC SYNDROME
     Dosage: UNK
     Route: 042
     Dates: start: 20160803
  2. LASIX [Concomitant]
     Active Substance: FUROSEMIDE
     Indication: PRODUCT USED FOR UNKNOWN INDICATION
     Dosage: 40 MG, PRN
     Route: 065
  3. REMERON [Concomitant]
     Active Substance: MIRTAZAPINE
     Indication: PRODUCT USED FOR UNKNOWN INDICATION
     Dosage: 30 MG, QD
     Route: 065

REACTIONS (12)
  - Haemoglobin abnormal [Unknown]
  - Carbon dioxide abnormal [Unknown]
  - Haematocrit abnormal [Unknown]
  - Red blood cell count abnormal [Unknown]
  - Malaise [Unknown]
  - Nausea [Unknown]
  - Anxiety [Unknown]
  - Pain [Unknown]
  - Pulmonary oedema [Unknown]
  - Systolic dysfunction [Unknown]
  - Fatigue [Unknown]
  - Protein total abnormal [Unknown]

NARRATIVE: CASE EVENT DATE: 201609
